FAERS Safety Report 14547669 (Version 1)
Quarter: 2018Q1

REPORT INFORMATION
  Report Type: Spontaneous
  Country: US (occurrence: US)
  Receive Date: 20180219
  Receipt Date: 20180219
  Transmission Date: 20180509
  Serious: No
  Sender: FDA-Public Use
  Company Number: US-TEVA-2018-US-857242

PATIENT
  Sex: Female

DRUGS (2)
  1. FENTANYL. [Suspect]
     Active Substance: FENTANYL
     Indication: ADULT T-CELL LYMPHOMA/LEUKAEMIA
     Dosage: 1 YEAR OR MORE AGO
  2. FENTANYL. [Suspect]
     Active Substance: FENTANYL
     Dosage: 1 YEAR OR MORE AGO

REACTIONS (4)
  - Pain [Unknown]
  - Confusional state [Unknown]
  - Decreased appetite [Unknown]
  - Ill-defined disorder [Unknown]
